FAERS Safety Report 7808457-0 (Version None)
Quarter: 2011Q4

REPORT INFORMATION
  Report Type: 
  Country: None (occurrence: None)
  Receive Date: 20111012
  Receipt Date: 20111010
  Transmission Date: 20120403
  Serious: Yes (Hospitalization)
  Sender: FDA-Public Use
  Company Number: US-BRACCO-006910

PATIENT
  Age: 47 Year
  Sex: Male
  Weight: 106.6 kg

DRUGS (5)
  1. ALL OTHER THERAPEUTIC PRODUCTS [Suspect]
     Dosage: 64.2 ML/HR FOR 3 HOURS
     Route: 041
     Dates: start: 20110819, end: 20110819
  2. ALL OTHER THERAPEUTIC PRODUCTS [Suspect]
     Dosage: FOUR CAPSULES POST INFUSION AT 15:41
     Dates: start: 20110819, end: 20110819
  3. ALL OTHER THERAPEUTIC PRODUCTS [Suspect]
     Dosage: AT 12:41
     Route: 040
     Dates: start: 20110819, end: 20110819
  4. IOPAMIDOL [Suspect]
     Indication: ANGIOGRAM
     Route: 042
     Dates: start: 20110819, end: 20110819
  5. ALL OTHER THERAPEUTIC PRODUCTS [Suspect]
     Dosage: 4 CAPSULES AS LOADING DOSE AT 13:10
     Dates: start: 20110819, end: 20110819

REACTIONS (1)
  - BLOOD CREATININE INCREASED [None]
